FAERS Safety Report 17330202 (Version 1)
Quarter: 2020Q1

REPORT INFORMATION
  Report Type: Spontaneous
  Country: US (occurrence: US)
  Receive Date: 20200127
  Receipt Date: 20200127
  Transmission Date: 20200409
  Serious: Yes (Other)
  Sender: FDA-Public Use
  Company Number: None

PATIENT
  Age: 9 Year
  Sex: Male
  Weight: 43.2 kg

DRUGS (3)
  1. DEXMETHYLPHENIDATE ER 20MG CAPSULES [Concomitant]
  2. DEXMETHYLPHENIDATE ER 20 MG CAPSULES [Suspect]
     Active Substance: DEXMETHYLPHENIDATE HYDROCHLORIDE
     Indication: OBSESSIVE-COMPULSIVE DISORDER
     Dosage: ?          QUANTITY:1 CAPSULE(S);?
     Route: 048
  3. DEXMETHYLPHENIDATE ER 20 MG CAPSULES [Suspect]
     Active Substance: DEXMETHYLPHENIDATE HYDROCHLORIDE
     Indication: ATTENTION DEFICIT/HYPERACTIVITY DISORDER
     Dosage: ?          QUANTITY:1 CAPSULE(S);?
     Route: 048

REACTIONS (6)
  - Abdominal pain upper [None]
  - Malaise [None]
  - Vomiting [None]
  - Product physical issue [None]
  - Product dose omission [None]
  - Pain [None]

NARRATIVE: CASE EVENT DATE: 20200116
